FAERS Safety Report 8135117-1 (Version None)
Quarter: 2012Q1

REPORT INFORMATION
  Report Type: 
  Country: None (occurrence: None)
  Receive Date: 20120214
  Receipt Date: 20120206
  Transmission Date: 20120608
  Serious: Yes (Other)
  Sender: FDA-Public Use
  Company Number: US-BAYER-201040944NA

PATIENT
  Age: 24 Year
  Sex: Female
  Weight: 84 kg

DRUGS (4)
  1. YAZ [Suspect]
     Indication: ACNE
     Dosage: UNK
     Route: 048
     Dates: start: 20041201, end: 20091001
  2. DROSPIRENONE AND ETHINYL ESTRADIOL [Suspect]
     Indication: ACNE
     Dosage: UNK
     Route: 048
     Dates: start: 20041201, end: 20091001
  3. YASMIN [Suspect]
     Indication: ACNE
     Dosage: UNK
     Route: 048
     Dates: start: 20041201, end: 20091001
  4. SYNTHROID [Concomitant]

REACTIONS (4)
  - CHOLELITHIASIS [None]
  - CHOLECYSTITIS [None]
  - ABDOMINAL PAIN UPPER [None]
  - PAIN [None]
